FAERS Safety Report 6181831-7 (Version None)
Quarter: 2009Q2

REPORT INFORMATION
  Report Type: 
  Country: None (occurrence: None)
  Receive Date: 20090506
  Receipt Date: 20090424
  Transmission Date: 20091009
  Serious: Yes (Hospitalization)
  Sender: FDA-Public Use
  Company Number: FR-ELI_LILLY_AND_COMPANY-FR200904005698

PATIENT
  Sex: Female

DRUGS (5)
  1. CYMBALTA [Suspect]
     Dosage: 30 MG, DAILY (1/D)
     Route: 048
     Dates: start: 20081103
  2. ZYPREXA [Suspect]
     Dosage: 7.5 MG, DAILY (1/D)
     Route: 048
  3. TERCIAN [Concomitant]
     Dosage: 75 MG, DAILY (1/D)
     Route: 048
  4. ALPRAZOLAM [Concomitant]
  5. DEPAMIDE [Concomitant]
     Dosage: 900 MG, DAILY (1/D)
     Route: 048

REACTIONS (4)
  - FALL [None]
  - LOSS OF CONSCIOUSNESS [None]
  - MALAISE [None]
  - PSYCHOMOTOR SKILLS IMPAIRED [None]
